FAERS Safety Report 16243233 (Version 1)
Quarter: 2019Q2

REPORT INFORMATION
  Report Type: Spontaneous
  Country: US (occurrence: US)
  Receive Date: 20190425
  Receipt Date: 20190425
  Transmission Date: 20190711
  Serious: Yes (Life-Threatening)
  Sender: FDA-Public Use
  Company Number: None

PATIENT
  Age: 57 Year
  Sex: Female
  Weight: 126 kg

DRUGS (6)
  1. CELEBREX [Concomitant]
     Active Substance: CELECOXIB
  2. ATORVASTIN [Concomitant]
     Active Substance: ATORVASTATIN
  3. BENICAR [Concomitant]
     Active Substance: OLMESARTAN MEDOXOMIL
  4. VICTOZA [Suspect]
     Active Substance: LIRAGLUTIDE
     Indication: BLOOD GLUCOSE FLUCTUATION
     Dosage: ?          QUANTITY:2 INJECTION(S);OTHER ROUTE:INJECTION TO STOMACH?
     Dates: start: 20190423, end: 20190423
  5. AMBIEN [Concomitant]
     Active Substance: ZOLPIDEM TARTRATE
  6. ONE-A-DAY NOS [Concomitant]
     Active Substance: MINERALS\VITAMINS

REACTIONS (6)
  - Blood glucose increased [None]
  - Blood pressure increased [None]
  - Bruxism [None]
  - Musculoskeletal stiffness [None]
  - Dyskinesia [None]
  - Heart rate increased [None]

NARRATIVE: CASE EVENT DATE: 20190423
